FAERS Safety Report 5011499-4 (Version None)
Quarter: 2006Q2

REPORT INFORMATION
  Report Type: 
  Country: None (occurrence: None)
  Receive Date: 20060524
  Receipt Date: 20060516
  Transmission Date: 20061013
  Serious: Yes (Hospitalization)
  Sender: FDA-Public Use
  Company Number: 200612063GDS

PATIENT
  Age: 73 Year
  Sex: Male

DRUGS (9)
  1. AVELOX [Suspect]
     Indication: CHRONIC OBSTRUCTIVE PULMONARY DISEASE
     Dosage: 400 MG, QD, ORAL
     Route: 048
     Dates: start: 20060429, end: 20060430
  2. FORADIL [Concomitant]
  3. SPIRIVA [Concomitant]
  4. MEPRAL [Concomitant]
  5. CLEXANE [Concomitant]
  6. ISOPTIN [Concomitant]
  7. DIFFUMAL [Concomitant]
  8. LASIX [Concomitant]
  9. BISOLVON [Concomitant]

REACTIONS (1)
  - ENTERITIS [None]
